FAERS Safety Report 9436252 (Version 2)
Quarter: 2013Q4

REPORT INFORMATION
  Report Type: Spontaneous
  Country: FR (occurrence: FR)
  Receive Date: 20130802
  Receipt Date: 20131021
  Transmission Date: 20140711
  Serious: Yes (Disabling, Other)
  Sender: FDA-Public Use
  Company Number: FR-AMGEN-FRASP2013053736

PATIENT
  Age: 53 Year
  Sex: Male
  Weight: 87 kg

DRUGS (7)
  1. ENBREL [Suspect]
     Indication: RHEUMATOID ARTHRITIS
     Dosage: 50 MG, WEEKLY
     Route: 065
     Dates: start: 2003
  2. ENBREL [Suspect]
     Dosage: 50 MG, EVERY OTHER WEEK
     Route: 065
     Dates: start: 2003
  3. IMETH [Suspect]
     Indication: RHEUMATOID ARTHRITIS
     Dosage: 15 MG, WEEKLY
     Route: 065
     Dates: start: 2003
  4. IMETH [Suspect]
     Dosage: 15 MG, EVERY OTHER WEEK
     Route: 065
     Dates: start: 2003
  5. IBUPROFENE [Concomitant]
     Dosage: UNKNOWN
  6. VOLTARENE                          /00372302/ [Concomitant]
     Dosage: UNKNOWN
  7. DOLIPRANE [Concomitant]
     Dosage: UNKNOWN

REACTIONS (1)
  - Polyarthritis [Not Recovered/Not Resolved]
